FAERS Safety Report 9857074 (Version 1)
Quarter: 2014Q1

REPORT INFORMATION
  Report Type: Spontaneous
  Country: SG (occurrence: None)
  Receive Date: 20140128
  Receipt Date: 20140128
  Transmission Date: 20141002
  Serious: Yes (Hospitalization, Other)
  Sender: FDA-Public Use
  Company Number: 2013US00950

PATIENT
  Age: 56 Year
  Sex: Male

DRUGS (4)
  1. GEMCITABINE (GEMCITABINE) INJECTION [Suspect]
     Indication: PLEURAL NEOPLASM
     Dosage: DOSE INTENSITY 0.75, 4 CYCLES
  2. GEMCITABINE (GEMCITABINE) INJECTION [Suspect]
     Indication: METASTASES TO LYMPH NODES
     Dosage: DOSE INTENSITY 0.75, 4 CYCLES
  3. CARBOPLATIN (CARBOPLATIN) INJECTION [Suspect]
     Indication: PLEURAL NEOPLASM
     Dosage: DOSE INTENSITY 0.75, 4 CYCLES
  4. CARBOPLATIN (CARBOPLATIN) INJECTION [Suspect]
     Indication: METASTASES TO LYMPH NODES
     Dosage: DOSE INTENSITY 0.75, 4 CYCLES

REACTIONS (2)
  - Thrombocytopenia [None]
  - Epistaxis [None]
